FAERS Safety Report 6691835-3 (Version None)
Quarter: 2010Q2

REPORT INFORMATION
  Report Type: 
  Country: None (occurrence: None)
  Receive Date: 20100422
  Receipt Date: 20100412
  Transmission Date: 20101027
  Serious: Yes (Hospitalization)
  Sender: FDA-Public Use
  Company Number: PHHY2010US15215

PATIENT
  Sex: Female
  Weight: 84 kg

DRUGS (2)
  1. ZOMETA [Suspect]
     Indication: OSTEOPOROSIS
     Dosage: UNK
     Route: 042
     Dates: start: 20100303, end: 20100303
  2. FEMARA [Concomitant]
     Dosage: 2.5 MG, DAILY
     Dates: start: 20100225, end: 20100318

REACTIONS (13)
  - ABASIA [None]
  - ARTHRALGIA [None]
  - BONE PAIN [None]
  - DIPLEGIA [None]
  - DISCOMFORT [None]
  - HYPERSENSITIVITY [None]
  - MENTAL IMPAIRMENT [None]
  - MUSCULOSKELETAL DISCOMFORT [None]
  - OEDEMA PERIPHERAL [None]
  - PAIN [None]
  - PAIN IN JAW [None]
  - TRISMUS [None]
  - VISUAL IMPAIRMENT [None]
